FAERS Safety Report 16249341 (Version 1)
Quarter: 2019Q2

REPORT INFORMATION
  Report Type: Spontaneous
  Country: US (occurrence: US)
  Receive Date: 20190325
  Receipt Date: 20190325
  Transmission Date: 20190711
  Serious: Yes (Hospitalization)
  Sender: FDA-Public Use
  Company Number: None

PATIENT
  Age: 45 Year
  Sex: Male
  Weight: 81.3 kg

DRUGS (1)
  1. GADAVIST [Suspect]
     Active Substance: GADOBUTROL
     Indication: NASOPHARYNGEAL CANCER
     Dosage: ?          OTHER DOSE:7.7ML;?
     Route: 042
     Dates: start: 20190319, end: 20190319

REACTIONS (1)
  - Urticaria [None]

NARRATIVE: CASE EVENT DATE: 20190319
